FAERS Safety Report 10190289 (Version 1)
Quarter: 2014Q2

REPORT INFORMATION
  Report Type: Report from Study
  Country: US (occurrence: US)
  Receive Date: 20140522
  Receipt Date: 20140522
  Transmission Date: 20141212
  Serious: Yes (Hospitalization)
  Sender: FDA-Public Use
  Company Number: US-ACTELION-A-NJ2014-99401

PATIENT
  Age: 61 Year
  Sex: Female

DRUGS (4)
  1. VENTAVIS [Suspect]
     Indication: PULMONARY ARTERIAL HYPERTENSION
     Dosage: UNK
     Route: 055
     Dates: start: 20130110
  2. SILDENAFIL [Concomitant]
  3. EFFIENT [Concomitant]
  4. ASPIRIN [Concomitant]

REACTIONS (2)
  - Myocardial infarction [Unknown]
  - Stent placement [Unknown]
